FAERS Safety Report 9927785 (Version 1)
Quarter: 2014Q1

REPORT INFORMATION
  Report Type: Spontaneous
  Country: SE (occurrence: SE)
  Receive Date: 20140227
  Receipt Date: 20140227
  Transmission Date: 20141002
  Serious: Yes (Hospitalization)
  Sender: FDA-Public Use
  Company Number: SE-ROCHE-1356412

PATIENT
  Age: 71 Year
  Sex: Female

DRUGS (10)
  1. MABTHERA [Suspect]
     Indication: RHEUMATOID ARTHRITIS
     Route: 065
     Dates: start: 201112
  2. MABTHERA [Suspect]
     Route: 065
     Dates: start: 20120104
  3. ENBREL [Suspect]
     Indication: RHEUMATOID ARTHRITIS
     Route: 065
     Dates: start: 1999, end: 2011
  4. METHOTREXATE [Suspect]
     Indication: RHEUMATOID ARTHRITIS
     Route: 065
     Dates: start: 1990, end: 2011
  5. CALCICHEW D3 [Suspect]
     Indication: PRODUCT USED FOR UNKNOWN INDICATION
     Dosage: REPORTED AS CALCICHEW-D3 CITRON
     Route: 065
  6. FOLACIN [Concomitant]
     Route: 065
  7. ORUDIS RETARD [Concomitant]
     Route: 065
  8. ACTIVELLE [Concomitant]
     Route: 065
  9. HERACILLIN [Concomitant]
     Route: 065
  10. VALTREX [Concomitant]
     Route: 065

REACTIONS (1)
  - Anal cancer [Unknown]
